FAERS Safety Report 8141873-9 (Version None)
Quarter: 2012Q1

REPORT INFORMATION
  Report Type: 
  Country: None (occurrence: None)
  Receive Date: 20120216
  Receipt Date: 20120213
  Transmission Date: 20120608
  Serious: Yes (Other)
  Sender: FDA-Public Use
  Company Number: GB-PFIZER INC-2012039131

PATIENT
  Sex: Male

DRUGS (1)
  1. LYRICA [Suspect]
     Indication: SPONDYLITIS
     Dosage: 75 MG DAILY

REACTIONS (5)
  - FALL [None]
  - HEADACHE [None]
  - CONSTIPATION [None]
  - VISUAL ACUITY REDUCED [None]
  - DIZZINESS [None]
